FAERS Safety Report 20142137 (Version 2)
Quarter: 2021Q4

REPORT INFORMATION
  Report Type: Spontaneous
  Country: JP (occurrence: JP)
  Receive Date: 20211202
  Receipt Date: 20211214
  Transmission Date: 20220303
  Serious: Yes (Other)
  Sender: FDA-Public Use
  Company Number: JP-TAKEDA-2021TUS076353

PATIENT
  Age: 58 Year
  Sex: Male

DRUGS (1)
  1. INTUNIV [Suspect]
     Active Substance: GUANFACINE HYDROCHLORIDE
     Indication: Attention deficit hyperactivity disorder
     Dosage: 6 MILLIGRAM, QD
     Route: 048

REACTIONS (3)
  - Electrocardiogram QT prolonged [Unknown]
  - Blood pressure decreased [Unknown]
  - Headache [Recovering/Resolving]
